FAERS Safety Report 16154428 (Version 2)
Quarter: 2019Q2

REPORT INFORMATION
  Report Type: Spontaneous
  Country: FR (occurrence: FR)
  Receive Date: 20190403
  Receipt Date: 20190429
  Transmission Date: 20190711
  Serious: Yes (Other)
  Sender: FDA-Public Use
  Company Number: FR-ACCORD-117794

PATIENT
  Age: 75 Year
  Sex: Female

DRUGS (2)
  1. GALVUS [Interacting]
     Active Substance: VILDAGLIPTIN
     Indication: TYPE 2 DIABETES MELLITUS
     Route: 048
     Dates: start: 2016
  2. RAMIPRIL. [Suspect]
     Active Substance: RAMIPRIL
     Indication: INFARCTION
     Route: 048
     Dates: start: 20190107, end: 20190112

REACTIONS (3)
  - Drug interaction [Unknown]
  - Angioedema [Recovered/Resolved]
  - Hepatic enzyme increased [Recovering/Resolving]

NARRATIVE: CASE EVENT DATE: 20190109
